FAERS Safety Report 24991305 (Version 2)
Quarter: 2025Q1

REPORT INFORMATION
  Report Type: Spontaneous
  Country: CN (occurrence: CN)
  Receive Date: 20250220
  Receipt Date: 20250320
  Transmission Date: 20250409
  Serious: Yes (Death, Hospitalization)
  Sender: SERVIER
  Company Number: CN-SERVIER-S25000876

PATIENT

DRUGS (1)
  1. IVOSIDENIB [Suspect]
     Active Substance: IVOSIDENIB
     Indication: Cholangiocarcinoma
     Dosage: 500 MG, QD
     Route: 048
     Dates: start: 20250116

REACTIONS (5)
  - General physical health deterioration [Fatal]
  - Blood bilirubin increased [Unknown]
  - Liver injury [Unknown]
  - Off label use [Recovered/Resolved]
  - Suspected product quality issue [Recovered/Resolved]

NARRATIVE: CASE EVENT DATE: 20250101
